FAERS Safety Report 4616003-8 (Version None)
Quarter: 2005Q1

REPORT INFORMATION
  Report Type: 
  Country: None (occurrence: None)
  Receive Date: 20050323
  Receipt Date: 20050310
  Transmission Date: 20050727
  Serious: Yes (Hospitalization)
  Sender: FDA-Public Use
  Company Number: US-JNJFOC-20050105876

PATIENT
  Sex: Female

DRUGS (25)
  1. INFLIXIMAB [Suspect]
     Route: 042
  2. INFLIXIMAB [Suspect]
     Indication: RHEUMATOID ARTHRITIS
     Route: 042
  3. ALBUTEROL [Concomitant]
  4. ALLEGRA [Concomitant]
  5. AMILORIDE [Concomitant]
  6. ASPIRIN [Concomitant]
  7. CELEBREX [Concomitant]
  8. FOLIC ACID [Concomitant]
  9. HUMIBID [Concomitant]
  10. LOPRESSOR [Concomitant]
  11. NITROSTAT [Concomitant]
  12. NORVASC [Concomitant]
  13. PLAVIX [Concomitant]
  14. PREMARIN [Concomitant]
  15. SYNTHROID [Concomitant]
  16. METHOTREXATE [Concomitant]
  17. ACIPHEX [Concomitant]
  18. MULTI-VITAMIN [Concomitant]
  19. MULTI-VITAMIN [Concomitant]
  20. MULTI-VITAMIN [Concomitant]
  21. MULTI-VITAMIN [Concomitant]
  22. MULTI-VITAMIN [Concomitant]
  23. MULTI-VITAMIN [Concomitant]
  24. MULTI-VITAMIN [Concomitant]
  25. MULTI-VITAMIN [Concomitant]

REACTIONS (3)
  - CHRONIC OBSTRUCTIVE AIRWAYS DISEASE EXACERBATED [None]
  - PNEUMONIA [None]
  - RESPIRATORY FAILURE [None]
